FAERS Safety Report 4269192-1 (Version None)
Quarter: 2004Q1

REPORT INFORMATION
  Report Type: 
  Country: None (occurrence: None)
  Receive Date: 20040113
  Receipt Date: 20031129
  Transmission Date: 20041129
  Serious: Yes (Other)
  Sender: FDA-Public Use
  Company Number: GB-GLAXOSMITHKLINE-B0316388A

PATIENT
  Age: 21 Year
  Sex: Male

DRUGS (2)
  1. ZYBAN [Suspect]
     Route: 065
  2. SEDATIVES (UNSPECIFIED) [Concomitant]
     Route: 065

REACTIONS (9)
  - ABNORMAL BEHAVIOUR [None]
  - AGGRESSION [None]
  - CONFUSIONAL STATE [None]
  - CONVULSION [None]
  - FALL [None]
  - HALLUCINATION, VISUAL [None]
  - INTENTIONAL OVERDOSE [None]
  - NERVOUS SYSTEM DISORDER [None]
  - WHITE BLOOD CELL COUNT INCREASED [None]
